FAERS Safety Report 8560148-7 (Version None)
Quarter: 2012Q3

REPORT INFORMATION
  Report Type: 
  Country: None (occurrence: None)
  Receive Date: 20120802
  Receipt Date: 20120726
  Transmission Date: 20120928
  Serious: Yes (Other)
  Sender: FDA-Public Use
  Company Number: MY-MSD-1207MYS009164

PATIENT

DRUGS (5)
  1. FENTANYL CITRATE [Concomitant]
     Indication: MUSCLE RELAXANT THERAPY
     Dosage: 0.03 MG, ONCE
     Dates: start: 20120722, end: 20120722
  2. ROCURONIUM BROMIDE [Concomitant]
     Indication: MUSCLE RELAXANT THERAPY
     Dosage: 60 MG, UNK
     Dates: start: 20120722, end: 20120722
  3. PROPOFOL [Concomitant]
     Indication: MUSCLE RELAXANT THERAPY
     Dosage: 40 MG, ONCE
     Dates: start: 20120722, end: 20120722
  4. FENTANYL CITRATE [Concomitant]
     Dosage: 10 MICROGRAM, UNK
     Route: 042
     Dates: start: 20120722, end: 20120722
  5. SUGAMMADEX SODIUM [Suspect]
     Indication: NEUROMUSCULAR BLOCKADE REVERSAL
     Dosage: 6 MG/KG, UNK
     Route: 040
     Dates: start: 20120722, end: 20120722

REACTIONS (4)
  - RESPIRATORY ARREST [None]
  - NEUROMUSCULAR BLOCK PROLONGED [None]
  - RECURRENCE OF NEUROMUSCULAR BLOCKADE [None]
  - ASPIRATION [None]
